FAERS Safety Report 22061039 (Version 1)
Quarter: 2023Q1

REPORT INFORMATION
  Report Type: Spontaneous
  Country: US (occurrence: US)
  Receive Date: 20230303
  Receipt Date: 20230303
  Transmission Date: 20230418
  Serious: No
  Sender: FDA-Public Use
  Company Number: US-Ipsen Biopharmaceuticals, Inc.-2023-03994

PATIENT
  Age: 44 Year
  Sex: Female

DRUGS (5)
  1. DYSPORT [Suspect]
     Active Substance: ABOBOTULINUMTOXINA
     Indication: Skin cosmetic procedure
     Dosage: 35 U INTO FRONTALIS, 60 U IN GLABELLA AND 20 U AROUND EACH EYE (CROW^S FEET)?INJECTED ON 13-FEB-2023
     Route: 065
  2. KLONOPIN [Concomitant]
     Active Substance: CLONAZEPAM
     Indication: Seasonal allergy
     Route: 065
  3. CLARITIN [Concomitant]
     Active Substance: LORATADINE
     Route: 065
  4. VALIUM [Concomitant]
     Active Substance: DIAZEPAM
     Indication: Anxiety
     Route: 065
  5. FLONASE ALLERGY RELIEF [Concomitant]
     Active Substance: FLUTICASONE PROPIONATE
     Indication: Seasonal allergy
     Route: 065

REACTIONS (6)
  - Headache [Recovering/Resolving]
  - Facial discomfort [Recovered/Resolved with Sequelae]
  - Erythema of eyelid [Recovering/Resolving]
  - Acne [Recovering/Resolving]
  - Conjunctival hyperaemia [Recovering/Resolving]
  - Contusion [Recovered/Resolved with Sequelae]

NARRATIVE: CASE EVENT DATE: 20230213
